FAERS Safety Report 8844640 (Version 1)
Quarter: 2012Q4

REPORT INFORMATION
  Report Type: Spontaneous
  Country: US (occurrence: None)
  Receive Date: 20121012
  Receipt Date: 20121012
  Transmission Date: 20130627
  Serious: Yes (Death)
  Sender: FDA-Public Use
  Company Number: TPA2012A07771

PATIENT
  Age: 83 Year
  Sex: Male

DRUGS (2)
  1. DEXILANT [Suspect]
     Indication: ACID DYSPEPSIA
     Dosage: 60 mg, 1 in 1 d
  2. DEXILANT [Suspect]
     Indication: DRUG USE FOR UNKNOWN INDICATION
     Dosage: 60 mg, 1 in 1 d

REACTIONS (1)
  - Death [None]
